FAERS Safety Report 8036305-5 (Version None)
Quarter: 2012Q1

REPORT INFORMATION
  Report Type: 
  Country: None (occurrence: None)
  Receive Date: 20120111
  Receipt Date: 20120106
  Transmission Date: 20120608
  Serious: Yes (Hospitalization, Other)
  Sender: FDA-Public Use
  Company Number: PHHY2012AR001800

PATIENT
  Sex: Female

DRUGS (1)
  1. EXFORGE [Suspect]
     Indication: HYPERTENSION
     Dosage: UNK
     Dates: start: 20110701, end: 20111001

REACTIONS (3)
  - CEREBROVASCULAR ACCIDENT [None]
  - MENTAL DISORDER [None]
  - BLOOD PRESSURE SYSTOLIC INCREASED [None]
